FAERS Safety Report 17150364 (Version 4)
Quarter: 2022Q2

REPORT INFORMATION
  Report Type: Report from Study
  Country: JP (occurrence: JP)
  Receive Date: 20191213
  Receipt Date: 20220624
  Transmission Date: 20220721
  Serious: Yes (Life-Threatening, Hospitalization, Other)
  Sender: FDA-Public Use
  Company Number: JP-VIIV HEALTHCARE ULC-JP2018JPN226114

PATIENT

DRUGS (57)
  1. ABACAVIR SULFATE\DOLUTEGRAVIR SODIUM\LAMIVUDINE [Suspect]
     Active Substance: ABACAVIR SULFATE\DOLUTEGRAVIR SODIUM\LAMIVUDINE
     Indication: HIV infection
     Dosage: 1 DF, 1D
     Route: 048
     Dates: start: 20160609
  2. LAMISIL [Concomitant]
     Active Substance: TERBINAFINE HYDROCHLORIDE
     Dosage: UNK
  3. EFINACONAZOLE [Concomitant]
     Active Substance: EFINACONAZOLE
     Dosage: UNK
  4. MINOCYCLINE HYDROCHLORIDE [Concomitant]
     Active Substance: MINOCYCLINE HYDROCHLORIDE
     Dosage: UNK
     Dates: end: 20170720
  5. DAIPHEN COMBINATION TABLETS [Concomitant]
     Indication: Prophylaxis
     Dosage: UNK
     Dates: start: 20170715, end: 20171114
  6. ITRIZOLE ORAL SOLUTION [Concomitant]
     Indication: Prophylaxis
     Dosage: UNK
     Dates: start: 20170715, end: 201801
  7. VICCLOX TABLETS [Concomitant]
     Indication: Prophylaxis
     Dosage: UNK
     Dates: start: 20170715, end: 201802
  8. FEBUXOSTAT [Concomitant]
     Active Substance: FEBUXOSTAT
     Indication: Prophylaxis
     Dosage: UNK
     Dates: start: 20170718, end: 20170802
  9. FAMOTIDINE [Concomitant]
     Active Substance: FAMOTIDINE
     Indication: Prophylaxis
     Dosage: UNK
     Dates: start: 20171024, end: 20171122
  10. OMEPRAZOLE INJECTION [Concomitant]
     Indication: Prophylaxis
     Dosage: UNK
     Dates: start: 20170715, end: 20170718
  11. GRANISETRON HYDROCHLORIDE INTRAVENOUS INFUSION [Concomitant]
     Indication: Prophylaxis
     Dosage: UNK
     Dates: start: 20170718, end: 20170718
  12. GRANISETRON HYDROCHLORIDE INTRAVENOUS INFUSION [Concomitant]
     Dosage: UNK
     Dates: start: 20170724, end: 20170804
  13. GRANISETRON HYDROCHLORIDE INTRAVENOUS INFUSION [Concomitant]
     Dosage: UNK
     Dates: start: 20170822, end: 20170826
  14. GRANISETRON HYDROCHLORIDE INTRAVENOUS INFUSION [Concomitant]
     Dosage: UNK
     Dates: start: 20170912, end: 20170916
  15. GRANISETRON HYDROCHLORIDE INTRAVENOUS INFUSION [Concomitant]
     Dosage: UNK
     Dates: start: 20171003, end: 20171007
  16. GRANISETRON HYDROCHLORIDE INTRAVENOUS INFUSION [Concomitant]
     Dosage: UNK
     Dates: start: 20171024, end: 20171028
  17. GRANISETRON HYDROCHLORIDE INTRAVENOUS INFUSION [Concomitant]
     Dosage: UNK
     Dates: start: 20171115, end: 20171119
  18. FUROSEMIDE [Concomitant]
     Active Substance: FUROSEMIDE
     Indication: Prophylaxis
     Dosage: UNK
     Dates: start: 20170717, end: 20170717
  19. FUROSEMIDE [Concomitant]
     Active Substance: FUROSEMIDE
     Dosage: UNK
     Dates: start: 20170719, end: 20170720
  20. FUROSEMIDE [Concomitant]
     Active Substance: FUROSEMIDE
     Dosage: UNK
     Dates: start: 20170917, end: 20170917
  21. FUROSEMIDE [Concomitant]
     Active Substance: FUROSEMIDE
     Dosage: UNK
     Dates: start: 20171116, end: 20171122
  22. FILGRASTIM BS INJECTION [Concomitant]
     Indication: Prophylaxis
     Dosage: UNK
     Dates: start: 20170720, end: 20170720
  23. FILGRASTIM BS INJECTION [Concomitant]
     Dosage: UNK
     Dates: start: 20170722, end: 20170723
  24. FILGRASTIM BS INJECTION [Concomitant]
     Dosage: UNK
     Dates: start: 20170729, end: 20170730
  25. FILGRASTIM BS INJECTION [Concomitant]
     Dosage: UNK
     Dates: start: 20170806, end: 20170815
  26. FILGRASTIM BS INJECTION [Concomitant]
     Dosage: UNK
     Dates: start: 20170829, end: 20170906
  27. FILGRASTIM BS INJECTION [Concomitant]
     Dosage: UNK
     Dates: start: 20170918, end: 20170928
  28. FILGRASTIM BS INJECTION [Concomitant]
     Dosage: UNK
     Dates: start: 20171010, end: 20171020
  29. FILGRASTIM BS INJECTION [Concomitant]
     Dosage: UNK
     Dates: start: 20171121, end: 20171130
  30. FILGRASTIM BS INJECTION [Concomitant]
     Dosage: UNK
     Dates: start: 20171205, end: 20171206
  31. DIAMOX SEQUELS [Concomitant]
     Active Substance: ACETAZOLAMIDE
     Indication: Prophylaxis
     Dosage: UNK
     Dates: start: 20170801, end: 20170804
  32. DIAMOX SEQUELS [Concomitant]
     Active Substance: ACETAZOLAMIDE
     Dosage: UNK
     Dates: start: 20170822, end: 20170828
  33. DIAMOX SEQUELS [Concomitant]
     Active Substance: ACETAZOLAMIDE
     Dosage: UNK
     Dates: start: 20170913, end: 20170915
  34. DIAMOX SEQUELS [Concomitant]
     Active Substance: ACETAZOLAMIDE
     Dosage: UNK
     Dates: start: 20171004, end: 20171010
  35. DIAMOX SEQUELS [Concomitant]
     Active Substance: ACETAZOLAMIDE
     Dosage: UNK
     Dates: start: 20171024, end: 20171029
  36. LANSOPRAZOLE-OD TABLETS [Concomitant]
     Indication: Prophylaxis
     Dosage: UNK
     Dates: start: 20170719, end: 201801
  37. SENNOSIDES [Concomitant]
     Active Substance: SENNOSIDES
     Indication: Prophylaxis
     Dosage: UNK
     Dates: start: 20170804, end: 20171030
  38. MAGNESIUM OXIDE [Concomitant]
     Active Substance: MAGNESIUM OXIDE
     Indication: Prophylaxis
     Dosage: UNK
     Dates: start: 20170804, end: 20171004
  39. LEVOFLOXACIN [Concomitant]
     Active Substance: LEVOFLOXACIN
     Indication: Prophylaxis
     Dosage: UNK
     Dates: start: 20170823, end: 20171017
  40. DIAMOX SEQUELS [Concomitant]
     Active Substance: ACETAZOLAMIDE
     Indication: Prophylaxis
     Dosage: UNK
     Dates: start: 20170824, end: 20171029
  41. AZITHROMYCIN DIHYDRATE [Concomitant]
     Active Substance: AZITHROMYCIN DIHYDRATE
     Indication: Prophylaxis
     Dosage: UNK, WE
     Dates: start: 20170830, end: 201801
  42. LEUCOVORIN [Concomitant]
     Active Substance: LEUCOVORIN
     Indication: Prophylaxis
     Dosage: UNK
     Dates: start: 20170802, end: 20170804
  43. LEUCOVORIN [Concomitant]
     Active Substance: LEUCOVORIN
     Dosage: UNK
     Dates: start: 20170824, end: 20170828
  44. LEUCOVORIN [Concomitant]
     Active Substance: LEUCOVORIN
     Dosage: UNK
     Dates: start: 20170914, end: 20170916
  45. LEUCOVORIN [Concomitant]
     Active Substance: LEUCOVORIN
     Dosage: UNK
     Dates: start: 20171005, end: 20171009
  46. LEUCOVORIN [Concomitant]
     Active Substance: LEUCOVORIN
     Dosage: UNK
     Dates: start: 20171026, end: 20171030
  47. MESNA [Concomitant]
     Active Substance: MESNA
     Indication: Prophylaxis
     Dosage: UNK
     Dates: start: 20170731, end: 20170804
  48. MESNA [Concomitant]
     Active Substance: MESNA
     Dosage: UNK
     Dates: start: 20170912, end: 20170916
  49. MESNA [Concomitant]
     Active Substance: MESNA
     Dosage: UNK
     Dates: start: 20171024, end: 20171028
  50. PENTAMIDINE [Concomitant]
     Active Substance: PENTAMIDINE
     Indication: Prophylaxis
     Dosage: UNK
     Dates: start: 20171113, end: 20171113
  51. TRIBENOSIDE [Concomitant]
     Active Substance: TRIBENOSIDE
     Dosage: UNK
     Dates: start: 20170525, end: 20170726
  52. MEYLON INJECTION [Concomitant]
     Indication: Prophylaxis
     Dosage: UNK
     Dates: start: 20170731, end: 20170804
  53. MEYLON INJECTION [Concomitant]
     Dosage: UNK
     Dates: start: 20170822, end: 20170828
  54. MEYLON INJECTION [Concomitant]
     Dosage: UNK
     Dates: start: 20170912, end: 20170915
  55. MEYLON INJECTION [Concomitant]
     Dosage: UNK
     Dates: start: 20171003, end: 20171007
  56. MEYLON INJECTION [Concomitant]
     Dosage: UNK
     Dates: start: 20171024, end: 20171031
  57. BIOFERMIN R (JAPAN) [Concomitant]
     Indication: Prophylaxis
     Dosage: UNK
     Dates: start: 20170906, end: 20171218

REACTIONS (4)
  - Burkitt^s lymphoma [Recovering/Resolving]
  - Nausea [Recovered/Resolved]
  - Goitre [Recovered/Resolved]
  - Renal impairment [Recovered/Resolved with Sequelae]

NARRATIVE: CASE EVENT DATE: 20170622
